FAERS Safety Report 10333643 (Version 1)
Quarter: 2014Q3

REPORT INFORMATION
  Report Type: Spontaneous
  Country: US (occurrence: US)
  Receive Date: 20140723
  Receipt Date: 20140723
  Transmission Date: 20150326
  Serious: Yes (Other)
  Sender: FDA-Public Use
  Company Number: US-AMGEN INC.-USASP2014053951

PATIENT
  Age: 57 Year
  Sex: Female

DRUGS (4)
  1. ENBREL [Suspect]
     Active Substance: ETANERCEPT
     Indication: RHEUMATOID ARTHRITIS
     Dosage: 50 MG, QWK
     Route: 065
  2. ORENCIA [Suspect]
     Active Substance: ABATACEPT
     Indication: PRODUCT USED FOR UNKNOWN INDICATION
     Dosage: UNK
     Route: 065
  3. METHOTREXATE [Suspect]
     Active Substance: METHOTREXATE
     Indication: PRODUCT USED FOR UNKNOWN INDICATION
     Dosage: UNK
     Route: 065
  4. NEXIUM [Concomitant]
     Active Substance: ESOMEPRAZOLE MAGNESIUM
     Dosage: UNK

REACTIONS (11)
  - Injection site extravasation [Recovered/Resolved]
  - Gastrooesophageal reflux disease [Recovered/Resolved]
  - Productive cough [Recovered/Resolved]
  - Nausea [Recovered/Resolved]
  - Drug ineffective [Recovered/Resolved]
  - Injection site haemorrhage [Recovered/Resolved]
  - Injection site vesicles [Not Recovered/Not Resolved]
  - Cough [Recovered/Resolved]
  - Choking [Recovered/Resolved]
  - Injection site bruising [Not Recovered/Not Resolved]
  - Injection site pruritus [Not Recovered/Not Resolved]

NARRATIVE: CASE EVENT DATE: 201406
